FAERS Safety Report 7630306-4 (Version None)
Quarter: 2011Q3

REPORT INFORMATION
  Report Type: 
  Country: None (occurrence: None)
  Receive Date: 20110722
  Receipt Date: 20110715
  Transmission Date: 20111222
  Serious: Yes (Other)
  Sender: FDA-Public Use
  Company Number: PHHY2011GB63751

PATIENT
  Age: 61 Year
  Sex: Female

DRUGS (11)
  1. HERBAL EXTRACTS NOS [Concomitant]
     Indication: MIGRAINE
     Dosage: UNK UKN, UNK
  2. BENDROFLUMETHIAZIDE [Concomitant]
     Dosage: UNK UKN, UNK
     Dates: start: 20110113
  3. SIMVASTATIN [Concomitant]
     Dosage: 40 MG, UNK
     Dates: start: 20100913
  4. ASPIRIN [Concomitant]
     Dosage: 75 MG, QD
     Dates: start: 20101202
  5. DANDELION [Concomitant]
     Dosage: UNK UKN, UNK
  6. RAMIPRIL [Suspect]
     Dosage: .75 MG, UNK
     Dates: start: 20101118
  7. BISOPROLOL FUMARATE [Suspect]
     Dosage: UNK UKN, UNK
     Dates: start: 20101001, end: 20101006
  8. DILTIAZEM [Suspect]
     Dosage: 200 MG, QD
     Dates: start: 20101006
  9. LOSARTAN POTASSIUM [Concomitant]
     Dosage: UNK UKN, UNK
  10. RAMIPRIL [Suspect]
     Indication: BLOOD PRESSURE
     Dosage: 2.5 MG, QD
     Dates: start: 20101206, end: 20101206
  11. INDAPAMIDE [Concomitant]
     Dosage: 1.5 MG, UNK
     Dates: start: 20101001

REACTIONS (3)
  - VISUAL IMPAIRMENT [None]
  - VISION BLURRED [None]
  - BLOOD PRESSURE INCREASED [None]
